FAERS Safety Report 4937243-4 (Version None)
Quarter: 2006Q1

REPORT INFORMATION
  Report Type: 
  Country: None (occurrence: None)
  Receive Date: 20060307
  Receipt Date: 20060307
  Transmission Date: 20060701
  Serious: Yes (Death, Hospitalization)
  Sender: FDA-Public Use
  Company Number: None

PATIENT
  Age: 86 Year
  Sex: Male
  Weight: 95.7 kg

DRUGS (1)
  1. WARFARIN SODIUM [Suspect]
     Indication: ATRIAL FIBRILLATION
     Dosage: 2.5 MG QD PO [SEVERAL YEARS]
     Route: 048

REACTIONS (7)
  - CEREBRAL HAEMORRHAGE [None]
  - FALL [None]
  - HEAD INJURY [None]
  - PUPILLARY LIGHT REFLEX TESTS ABNORMAL [None]
  - PUPILS UNEQUAL [None]
  - UNRESPONSIVE TO PAIN STIMULI [None]
  - UNRESPONSIVE TO VERBAL STIMULI [None]
